FAERS Safety Report 23439608 (Version 2)
Quarter: 2024Q2

REPORT INFORMATION
  Report Type: Spontaneous
  Country: US (occurrence: US)
  Receive Date: 20240124
  Receipt Date: 20240422
  Transmission Date: 20240715
  Serious: No
  Sender: FDA-Public Use
  Company Number: US-BRISTOL-MYERS SQUIBB COMPANY-2024-011718

PATIENT
  Age: 73 Year
  Sex: Female
  Weight: 89.81 kg

DRUGS (3)
  1. ELIQUIS [Suspect]
     Active Substance: APIXABAN
     Indication: Atrial fibrillation
  2. VYNDAMAX [Suspect]
     Active Substance: TAFAMIDIS
     Indication: Product used for unknown indication
  3. JARDIANCE [Suspect]
     Active Substance: EMPAGLIFLOZIN
     Indication: Cardiac disorder

REACTIONS (7)
  - Weight increased [Unknown]
  - Hunger [Unknown]
  - Rash [Not Recovered/Not Resolved]
  - Pain in extremity [Unknown]
  - Swelling [Unknown]
  - Troponin increased [Recovered/Resolved]
  - Fluid retention [Unknown]
